FAERS Safety Report 12932169 (Version 1)
Quarter: 2016Q4

REPORT INFORMATION
  Report Type: Spontaneous
  Country: US (occurrence: US)
  Receive Date: 20161111
  Receipt Date: 20161111
  Transmission Date: 20170207
  Serious: Yes (Life-Threatening, Hospitalization)
  Sender: FDA-Public Use
  Company Number: US-ACCORD-045476

PATIENT
  Age: 50 Year
  Sex: Female

DRUGS (2)
  1. FLUOROURACIL. [Suspect]
     Active Substance: FLUOROURACIL
     Indication: RECTAL CANCER STAGE III
     Dosage: 5-FU 1000 MG/M2/DAY IV CONTINUOUS INFUSION ON DAYS ONE TO FOUR AND 29-32
     Route: 042
  2. MITOMYCIN. [Suspect]
     Active Substance: MITOMYCIN
     Indication: RECTAL CANCER STAGE III
     Dosage: MMC, 10 MG/M2 IV BOLUS ON DAYS 1 AND 29 (MAXIMUM 20 MG PER DOSE)
     Route: 040

REACTIONS (9)
  - Mucosal inflammation [Unknown]
  - Anaemia [Unknown]
  - Pancytopenia [Unknown]
  - Thrombocytopenia [Unknown]
  - Urinary tract infection [Unknown]
  - Neutropenia [Recovered/Resolved]
  - Off label use [Unknown]
  - Diarrhoea [Recovered/Resolved]
  - Rash [Unknown]
